FAERS Safety Report 18782194 (Version 1)
Quarter: 2021Q1

REPORT INFORMATION
  Report Type: Spontaneous
  Country: US (occurrence: US)
  Receive Date: 20210125
  Receipt Date: 20210125
  Transmission Date: 20210419
  Serious: No
  Sender: FDA-Public Use
  Company Number: US-TEVA-2021-US-1870824

PATIENT
  Sex: Female

DRUGS (1)
  1. HYDROXYZINE HCL [Suspect]
     Active Substance: HYDROXYZINE HYDROCHLORIDE
     Indication: LIVER DISORDER
     Dosage: 25 OR 50 (UNITS NOT REPORTED)
     Route: 065

REACTIONS (2)
  - Product dose omission issue [Unknown]
  - Pruritus [Unknown]
